FAERS Safety Report 7564571-9 (Version None)
Quarter: 2011Q2

REPORT INFORMATION
  Report Type: 
  Country: None (occurrence: None)
  Receive Date: 20110622
  Receipt Date: 20100614
  Transmission Date: 20111010
  Serious: Yes (Death)
  Sender: FDA-Public Use
  Company Number: US-MYLANLABS-2010S1009908

PATIENT
  Age: 53 Year
  Sex: Male

DRUGS (8)
  1. GENTAMICIN [Concomitant]
     Route: 042
  2. INSULIN [Concomitant]
  3. AMBIEN [Concomitant]
  4. CLOZAPINE [Suspect]
     Route: 048
     Dates: start: 20100521, end: 20100523
  5. TEGRETOL [Concomitant]
  6. CLOZAPINE [Suspect]
     Route: 048
     Dates: start: 20100521, end: 20100523
  7. SODIUM BICARBONATE [Concomitant]
  8. RISPERDAL [Concomitant]

REACTIONS (1)
  - DEATH [None]
